FAERS Safety Report 24705352 (Version 2)
Quarter: 2024Q4

REPORT INFORMATION
  Report Type: Spontaneous
  Country: US (occurrence: US)
  Receive Date: 20241206
  Receipt Date: 20241217
  Transmission Date: 20250114
  Serious: Yes (Hospitalization, Other)
  Sender: AUROBINDO
  Company Number: US-MLMSERVICE-20241115-PI259286-00135-1

PATIENT
  Age: 62 Year
  Sex: Male

DRUGS (3)
  1. ERYTHROMYCIN ETHYLSUCCINATE [Interacting]
     Active Substance: ERYTHROMYCIN ETHYLSUCCINATE
     Indication: Osteomyelitis
     Dosage: 500 MILLIGRAM, FOUR TIMES/DAY
     Route: 065
  2. DOXYCYCLINE [Suspect]
     Active Substance: DOXYCYCLINE
     Indication: Product used for unknown indication
     Dosage: 100 MILLIGRAM, TWO TIMES A DAY
     Route: 065
  3. TACROLIMUS [Interacting]
     Active Substance: TACROLIMUS
     Indication: Immunosuppressant drug therapy
     Dosage: UNK
     Route: 065

REACTIONS (7)
  - Crystal nephropathy [Recovering/Resolving]
  - Acute kidney injury [Recovering/Resolving]
  - Kidney fibrosis [Recovering/Resolving]
  - Diarrhoea [Unknown]
  - Condition aggravated [Recovering/Resolving]
  - Hyperoxaluria [Recovering/Resolving]
  - Drug interaction [Recovering/Resolving]
